FAERS Safety Report 4846000-9 (Version None)
Quarter: 2005Q4

REPORT INFORMATION
  Report Type: 
  Country: None (occurrence: None)
  Receive Date: 20051206
  Receipt Date: 20050427
  Transmission Date: 20060501
  Serious: Yes (Hospitalization)
  Sender: FDA-Public Use
  Company Number: IT-JNJFOC-20041105669

PATIENT
  Sex: Male
  Weight: 65 kg

DRUGS (14)
  1. BLINDED; ABCIXIMA [Suspect]
     Route: 042
  2. BLINDED; ABCIXIMA [Suspect]
     Indication: ACUTE MYOCARDIAL INFARCTION
     Route: 042
  3. RETEPLASE [Suspect]
     Route: 042
  4. RETEPLASE [Suspect]
     Indication: ACUTE MYOCARDIAL INFARCTION
     Route: 042
  5. PLACEBO [Suspect]
     Indication: ACUTE MYOCARDIAL INFARCTION
     Route: 042
  6. WARFARIN [Concomitant]
     Indication: ANTICOAGULANT THERAPY
     Route: 048
  7. AMIODARONE [Concomitant]
     Indication: ARRHYTHMIA
     Route: 048
  8. STATIN [Concomitant]
     Route: 048
  9. LASIX [Concomitant]
     Indication: DIURETIC THERAPY
     Route: 048
  10. COVERSYL [Concomitant]
     Dosage: 1/2 DAILY
     Route: 048
  11. ASPIRIN [Concomitant]
  12. DIGOXIN [Concomitant]
  13. PROMAZINE HCL [Concomitant]
  14. TICLOPIDINE HCL [Concomitant]

REACTIONS (9)
  - AORTIC VALVE INCOMPETENCE [None]
  - ATRIAL FIBRILLATION [None]
  - CARDIAC ARREST [None]
  - CHORDAE TENDINAE RUPTURE [None]
  - DILATATION VENTRICULAR [None]
  - MITRAL VALVE INCOMPETENCE [None]
  - MITRAL VALVE PROLAPSE [None]
  - TRICUSPID VALVE INCOMPETENCE [None]
  - VENTRICULAR FIBRILLATION [None]
